FAERS Safety Report 7912614-2 (Version None)
Quarter: 2011Q4

REPORT INFORMATION
  Report Type: 
  Country: None (occurrence: None)
  Receive Date: 20111114
  Receipt Date: 20111101
  Transmission Date: 20120403
  Serious: Yes (Hospitalization, Other)
  Sender: FDA-Public Use
  Company Number: CA-ROCHE-GNE310819

PATIENT
  Sex: Female
  Weight: 61.065 kg

DRUGS (1)
  1. OMALIZUMAB [Suspect]
     Indication: ASTHMA
     Dosage: 300 MG, Q2W
     Route: 058
     Dates: start: 20071105

REACTIONS (7)
  - BRONCHITIS [None]
  - ASTHMA [None]
  - INFECTION [None]
  - SINUS DISORDER [None]
  - NASOPHARYNGITIS [None]
  - RESPIRATORY TRACT CONGESTION [None]
  - OROPHARYNGEAL PAIN [None]
